FAERS Safety Report 25712930 (Version 2)
Quarter: 2025Q4

REPORT INFORMATION
  Report Type: Spontaneous
  Country: AU (occurrence: AU)
  Receive Date: 20250821
  Receipt Date: 20251007
  Transmission Date: 20260118
  Serious: Yes (Other)
  Sender: BAUSCH AND LOMB
  Company Number: AU-BAUSCHBL-2025BNL014382

PATIENT
  Age: 48 Year
  Sex: Male

DRUGS (3)
  1. PREDNISOLONE [Suspect]
     Active Substance: PREDNISOLONE
     Indication: Product used for unknown indication
     Route: 065
  2. EPINEPHRINE [Suspect]
     Active Substance: EPINEPHRINE
     Indication: Product used for unknown indication
     Route: 065
     Dates: start: 202506
  3. PILOCARPINE NITRATE [Suspect]
     Active Substance: PILOCARPINE NITRATE
     Indication: Product used for unknown indication

REACTIONS (7)
  - Aplasia pure red cell [Unknown]
  - Complications of transplanted kidney [Unknown]
  - Polyomavirus-associated nephropathy [Unknown]
  - Cytomegalovirus viraemia [Unknown]
  - Polyomavirus viraemia [Unknown]
  - Parvovirus B19 infection [Unknown]
  - Off label use [Unknown]
